FAERS Safety Report 8239382-1 (Version None)
Quarter: 2012Q1

REPORT INFORMATION
  Report Type: 
  Country: None (occurrence: None)
  Receive Date: 20120326
  Receipt Date: 20120312
  Transmission Date: 20120608
  Serious: Yes (Hospitalization)
  Sender: FDA-Public Use
  Company Number: IMP_05771_2012

PATIENT
  Age: 88 Year
  Sex: Female

DRUGS (5)
  1. PERINDOPRIL AND INDAPAMIDE [Concomitant]
  2. ISOSORBIDE MONONITRATE [Concomitant]
  3. DIGOXIN [Suspect]
     Indication: CARDIAC FAILURE
     Dosage: 25 MG QD
  4. FUROSEMIDE [Concomitant]
  5. CLOPIDOGREL [Concomitant]

REACTIONS (19)
  - SINUS BRADYCARDIA [None]
  - ATRIAL FIBRILLATION [None]
  - URINE OUTPUT INCREASED [None]
  - DECREASED APPETITE [None]
  - HYPERKALAEMIA [None]
  - NAUSEA [None]
  - LETHARGY [None]
  - TOXICITY TO VARIOUS AGENTS [None]
  - SINUS ARRHYTHMIA [None]
  - VENTRICULAR ARRHYTHMIA [None]
  - RENAL FAILURE ACUTE [None]
  - ATRIOVENTRICULAR BLOCK [None]
  - VISUAL IMPAIRMENT [None]
  - ASTHENIA [None]
  - VOMITING [None]
  - ENCEPHALOPATHY [None]
  - VENTRICULAR TACHYCARDIA [None]
  - VENTRICULAR FIBRILLATION [None]
  - HYPOTENSION [None]
